FAERS Safety Report 5755473-9 (Version None)
Quarter: 2008Q2

REPORT INFORMATION
  Report Type: 
  Country: None (occurrence: None)
  Receive Date: 20080602
  Receipt Date: 20080522
  Transmission Date: 20081010
  Serious: Yes (Death, Other)
  Sender: FDA-Public Use
  Company Number: US-ROCHE-551466

PATIENT
  Sex: Male
  Weight: 96.2 kg

DRUGS (2)
  1. TAMIFLU [Suspect]
     Indication: INFLUENZA
     Route: 065
     Dates: start: 20080303, end: 20080304
  2. UNSPECIFIED MEDICATION [Concomitant]
     Dosage: MEDICATION REPORTED AS ^ANTIBIOTIC.^
     Dates: start: 20080301

REACTIONS (8)
  - ARTERIOSCLEROSIS [None]
  - BLOOD GLUCOSE INCREASED [None]
  - BRONCHITIS [None]
  - HALLUCINATION, AUDITORY [None]
  - HEPATIC CIRRHOSIS [None]
  - HYPERTENSIVE HEART DISEASE [None]
  - INFLUENZA [None]
  - MITRAL VALVE DISEASE [None]
